FAERS Safety Report 9384845 (Version 1)
Quarter: 2013Q3

REPORT INFORMATION
  Report Type: Spontaneous
  Country: IT (occurrence: None)
  Receive Date: 20130701
  Receipt Date: 20130701
  Transmission Date: 20140515
  Serious: Yes (Other)
  Sender: FDA-Public Use
  Company Number: SYM-2013-05124

PATIENT
  Sex: 0

DRUGS (5)
  1. FLUOROURACIL [Suspect]
     Indication: RECTAL ADENOCARCINOMA
     Route: 042
  2. OXALIPLATIN [Suspect]
     Indication: RECTAL ADENOCARCINOMA
     Route: 042
  3. THERAPEUTIC RADIOPHARMACEUTICALS (THERAPEUTIC RADIOPHARMACEUTICALS) [Concomitant]
  4. DEXAMETHASONE (DEXAMETHASONE) (DEXAMETHASONE) [Concomitant]
  5. ONDANSETRON (ONDANSETRON) (ONDANSETRON) [Concomitant]

REACTIONS (3)
  - Neuropathy peripheral [None]
  - Sensory loss [None]
  - Paraesthesia [None]
